FAERS Safety Report 9205021 (Version 1)
Quarter: 2013Q1

REPORT INFORMATION
  Report Type: Spontaneous
  Country: US (occurrence: None)
  Receive Date: 20120709
  Receipt Date: 20120709
  Transmission Date: 20140127
  Serious: No
  Sender: FDA-Public Use
  Company Number: 2012HGS-003375

PATIENT
  Age: 48 Year
  Sex: 0
  Weight: 86.64 kg

DRUGS (23)
  1. BENLYSTA [Suspect]
     Indication: SYSTEMIC LUPUS ERYTHEMATOSUS
     Dosage: EVERY OTHER WEEK, INTRAVENOUS DRIP
     Route: 041
     Dates: start: 20111108
  2. PREDNISONE (PREDINSONE) (PREDINSONE) [Concomitant]
  3. OMEPRAZOLE (OMEPRAZOLE) (OMEPRAZOLE) [Concomitant]
  4. LISINOPRIL (LISINOPRIL) (LISINOPRIL) [Concomitant]
  5. VITAMIN D (ERGOCALCIFEROL) (ERGOCALCIFEROL) [Concomitant]
  6. FOLGARD (HEPAGRISEVIT FORTE-N/01079901/) (PYRIDOXINE HYDROCHLORIDE, FOLIC ACID, CYANOCOBALAMIN) [Concomitant]
  7. HYDROXYCHLOROQUINE SULFATE (HYDROXYCHLOROQUINE SULFATE) HYDROXYCHLOROQUINE) [Concomitant]
     Route: 042
  8. TOMPAMAX (TOPIRAMATE) (TOPIRAMATE) [Concomitant]
  9. AMBIEN (ZOLPIDEM TARTRATE) (ZOLPIDEM TARTRATE) [Concomitant]
  10. CITALOPRAM (CITALOPRAM) (CITALOPRAM) [Concomitant]
  11. RANITIDINE (RANITIDIEN) (RANITIDINE) [Concomitant]
  12. CALTRATE [Concomitant]
  13. ZOFRAN (ONDANSETRON) (ONDANSETRON) [Concomitant]
  14. IMITREX (SUMARTRIPTAN) (SUMATRIPTAN) [Concomitant]
  15. MULTIVITAMIN (VIGRAN) (ERGOCALCIFEROL, ASCORBIC ACID, PYRIDOXINE HYDROCHLORIDE, THIAMINE HYDROCHLORIDE, RETINOL, RIBOFLAVIN, NICOTINAMIDE, CALCJH  PANTOTHENATE) [Concomitant]
  16. VITAMIN C (ASCORBIC ACID) (ASCORBIC ACID) [Concomitant]
  17. SLOW-FE (FERROUS SULFATE) (FERROUS SULFATE) [Concomitant]
  18. NORCO (VICODIN) (PARACETAMOL, HYDROCODONE BITARTRATE) [Concomitant]
  19. BENZOIN TINCTURE (STYRAX BENZOIN TINCTURE) (STYRAX BENZOIN TINCTURE) [Concomitant]
  20. LIDOCAINE VISCOUS (LIDOCAINE HYDROCHLORIDE) (LIDOCAINE HYDROCHLORIDE) [Concomitant]
  21. VOLTAREN GEL (DICLOFENAC SODIUM) (DICLOFENAC SODIUM) [Concomitant]
  22. NYSTATIN CREAM (NYSTATIN) (NYSTATIN) [Concomitant]
  23. ICAPS (ICAPS) (VITAMINS NOS, MINERALS NOS) [Concomitant]

REACTIONS (1)
  - Pyrexia [None]
